FAERS Safety Report 5915720-7 (Version None)
Quarter: 2008Q4

REPORT INFORMATION
  Report Type: 
  Country: None (occurrence: None)
  Receive Date: 20081010
  Receipt Date: 20080929
  Transmission Date: 20090506
  Serious: Yes (Hospitalization)
  Sender: FDA-Public Use
  Company Number: JP-PFIZER INC-2008073698

PATIENT
  Sex: Female

DRUGS (24)
  1. ZYVOX [Interacting]
     Indication: STAPHYLOCOCCAL SEPSIS
     Route: 042
     Dates: start: 20080825, end: 20080828
  2. ZYVOX [Interacting]
     Route: 042
     Dates: start: 20080829, end: 20080901
  3. PAXIL [Interacting]
     Indication: DEPRESSION
     Route: 048
     Dates: start: 20080729, end: 20080825
  4. PREDONINE [Suspect]
     Indication: DRUG ERUPTION
     Route: 048
     Dates: start: 20080819, end: 20080828
  5. PREDONINE [Suspect]
     Indication: SYSTEMIC LUPUS ERYTHEMATOSUS
  6. PREDONINE [Suspect]
     Indication: ADRENAL INSUFFICIENCY
  7. PREDONINE [Suspect]
     Route: 042
     Dates: start: 20080829
  8. PREDONINE [Suspect]
     Dosage: DAILY DOSE:20MG
     Route: 042
     Dates: start: 20080903
  9. RINDERON [Suspect]
     Indication: SYSTEMIC LUPUS ERYTHEMATOSUS
     Route: 048
     Dates: end: 20080829
  10. VANCOMYCIN HYDROCHLORIDE [Concomitant]
  11. MEXITIL [Concomitant]
     Route: 048
     Dates: start: 20080719, end: 20080819
  12. TAKEPRON [Concomitant]
     Route: 048
  13. OPALMON [Concomitant]
     Route: 048
     Dates: end: 20080826
  14. LEVOTHYROXINE SODIUM [Concomitant]
     Route: 048
  15. HYPEN [Concomitant]
     Route: 048
     Dates: end: 20080829
  16. SELBEX [Concomitant]
     Route: 048
     Dates: end: 20080829
  17. VITAMEDIN CAPSULE [Concomitant]
     Route: 048
     Dates: end: 20080824
  18. ALESION [Concomitant]
     Route: 048
     Dates: start: 20080819, end: 20080823
  19. ALOSENN [Concomitant]
     Route: 048
     Dates: end: 20080829
  20. ALENDRONATE SODIUM [Concomitant]
     Route: 048
     Dates: end: 20080829
  21. DIGOXIN [Concomitant]
     Route: 048
     Dates: end: 20080826
  22. CALTAN [Concomitant]
     Route: 048
     Dates: end: 20080826
  23. WARFARIN SODIUM [Concomitant]
     Route: 048
     Dates: end: 20080826
  24. BROTIZOLAM [Concomitant]
     Route: 048
     Dates: end: 20080829

REACTIONS (2)
  - DRUG INTERACTION [None]
  - SEROTONIN SYNDROME [None]
